FAERS Safety Report 23760888 (Version 1)
Quarter: 2024Q2

REPORT INFORMATION
  Report Type: Other
  Country: IN (occurrence: IN)
  Receive Date: 20240419
  Receipt Date: 20240419
  Transmission Date: 20240715
  Serious: Yes (Life-Threatening)
  Sender: FDA-Public Use
  Company Number: IN-B.Braun Medical Inc.-2155749

PATIENT
  Age: 28 Year
  Sex: Female

DRUGS (4)
  1. DEXTROSE\MAGNESIUM SULFATE [Suspect]
     Active Substance: DEXTROSE\MAGNESIUM SULFATE
     Indication: Eclampsia
     Route: 042
  2. Labetalol/long-acting nifedipine/aspirin [Concomitant]
  3. Oral LABETALOL [Concomitant]
  4. HYDRALAZINE [Concomitant]
     Active Substance: HYDRALAZINE HYDROCHLORIDE

REACTIONS (3)
  - Drug ineffective [Unknown]
  - Off label use [Unknown]
  - Hypermagnesaemia [Unknown]
